FAERS Safety Report 20199582 (Version 1)
Quarter: 2021Q4

REPORT INFORMATION
  Report Type: Spontaneous
  Country: CZ (occurrence: CZ)
  Receive Date: 20211217
  Receipt Date: 20211217
  Transmission Date: 20220303
  Serious: Yes (Hospitalization)
  Sender: FDA-Public Use
  Company Number: CZ-002147023-NVSC2021CZ252806

PATIENT
  Sex: Female
  Weight: 58 kg

DRUGS (3)
  1. SUMATRIPTAN [Suspect]
     Active Substance: SUMATRIPTAN
     Indication: Migraine
     Dosage: 100 MG, QD (LAST SIX MONTHS)
     Route: 065
  2. SUMATRIPTAN [Suspect]
     Active Substance: SUMATRIPTAN
     Dosage: 50 MG, QD (LAST SIX MONTHS)
     Route: 065
  3. INDOMETHACIN [Concomitant]
     Active Substance: INDOMETHACIN
     Indication: Product used for unknown indication
     Dosage: 100 MG (25 TO 30 X IN A MONTH)
     Route: 065

REACTIONS (5)
  - Head discomfort [Unknown]
  - Migraine [Unknown]
  - Medication overuse headache [Unknown]
  - Headache [Unknown]
  - Nausea [Unknown]
